FAERS Safety Report 18968283 (Version 5)
Quarter: 2021Q1

REPORT INFORMATION
  Report Type: Report from Study
  Country: KR (occurrence: KR)
  Receive Date: 20210304
  Receipt Date: 20210323
  Transmission Date: 20210420
  Serious: Yes (Hospitalization)
  Sender: FDA-Public Use
  Company Number: KR-ROCHE-2782214

PATIENT
  Age: 36 Year
  Sex: Female
  Weight: 60.1 kg

DRUGS (10)
  1. GRASIN [Concomitant]
     Indication: NEUTROPHIL COUNT DECREASED
     Route: 058
     Dates: start: 20210303, end: 20210303
  2. MAGNESIUM SULFATE. [Concomitant]
     Active Substance: MAGNESIUM SULFATE
     Route: 042
     Dates: start: 20210302, end: 20210302
  3. REGORAFENIB. [Suspect]
     Active Substance: REGORAFENIB
     Indication: COLORECTAL CANCER
     Dosage: ON 01/MAR/2021, SHE RECEIVED THE MOST RECENT DOSE OF REGORAFENIB (80 MG) PRIOR TO ONSET OF SERIOUS A
     Route: 048
     Dates: start: 20210216
  4. IBUPROFEN. [Concomitant]
     Active Substance: IBUPROFEN
  5. ATEZOLIZUMAB. [Suspect]
     Active Substance: ATEZOLIZUMAB
     Indication: COLORECTAL CANCER
     Dosage: ON 16/FEB/2021, SHE RECEIVED LAST DOSE OF ATEZOLIZUMAB (840 MG) PRIOR TO ONSET OF SERIOUS ADVERSE EV
     Route: 042
     Dates: start: 20210216
  6. TAZOPERAN [Concomitant]
     Route: 042
     Dates: start: 20210301, end: 20210301
  7. TAZOPERAN [Concomitant]
     Route: 042
     Dates: start: 20210302, end: 20210308
  8. NEXIUM [Concomitant]
     Active Substance: ESOMEPRAZOLE MAGNESIUM
     Route: 042
     Dates: start: 20210302, end: 20210308
  9. PHOSTEN [Concomitant]
     Indication: HYPOPHOSPHATAEMIA
     Route: 042
     Dates: start: 20210302, end: 20210302
  10. WINUF PERI [Concomitant]
     Active Substance: AMINO ACIDS\DEXTROSE\ELECTROLYTES NOS\SOYBEAN OIL\VITAMINS
     Route: 042
     Dates: start: 20210303, end: 20210308

REACTIONS (2)
  - Pyrexia [Recovered/Resolved]
  - Rash maculo-papular [Recovered/Resolved]

NARRATIVE: CASE EVENT DATE: 20210301
